FAERS Safety Report 12136045 (Version 1)
Quarter: 2016Q1

REPORT INFORMATION
  Report Type: Spontaneous
  Country: FR (occurrence: FR)
  Receive Date: 20160302
  Receipt Date: 20160302
  Transmission Date: 20160526
  Serious: Yes (Hospitalization, Other)
  Sender: FDA-Public Use
  Company Number: FR-ACCORD-038444

PATIENT
  Age: 65 Year
  Sex: Male
  Weight: 125 kg

DRUGS (14)
  1. ERBITUX [Suspect]
     Active Substance: CETUXIMAB
     Indication: SQUAMOUS CELL CARCINOMA
     Dosage: 5MG/ML, AT DAY 1 AND 250 MG/M2 PER WEEK
     Route: 042
     Dates: start: 201510, end: 20151228
  2. METFORMIN [Concomitant]
     Active Substance: METFORMIN HYDROCHLORIDE
  3. ZOPICLONE [Concomitant]
     Active Substance: ZOPICLONE
     Dosage: 7.5 MG IN THE EVENING
  4. XATRAL [Concomitant]
     Active Substance: ALFUZOSIN
     Dosage: XATRAL 10 MG LP
  5. CARBOPLATIN KABI [Suspect]
     Active Substance: CARBOPLATIN
     Indication: SQUAMOUS CELL CARCINOMA
     Dosage: STRENGTH: 10 MG/ML, AUC AT 5 EVERY 21 DAYS
     Route: 042
     Dates: start: 20151209, end: 20151228
  6. KARDEGIC [Concomitant]
     Active Substance: ASPIRIN LYSINE
  7. PULMICORT TURBUHALER [Concomitant]
     Active Substance: BUDESONIDE
  8. FLUOROURACIL ACCORD [Suspect]
     Active Substance: FLUOROURACIL
     Indication: SQUAMOUS CELL CARCINOMA
     Dosage: 50 MG/ML CONTINUOUS INFUSION DURING 4 DAYS,?EVERY 21 DAYS
     Route: 042
     Dates: start: 201510, end: 20151228
  9. AVODART [Concomitant]
     Active Substance: DUTASTERIDE
  10. INEXIUM [Concomitant]
     Active Substance: ESOMEPRAZOLE
     Dosage: 20 MG IN THE MORNING
  11. IXPRIM [Concomitant]
     Active Substance: ACETAMINOPHEN\TRAMADOL HYDROCHLORIDE
  12. VALSARTAN. [Concomitant]
     Active Substance: VALSARTAN
  13. TERBUTALINE [Concomitant]
     Active Substance: TERBUTALINE
  14. CISPLATIN. [Suspect]
     Active Substance: CISPLATIN
     Indication: SQUAMOUS CELL CARCINOMA
     Dates: start: 201510, end: 20151209

REACTIONS (7)
  - Dyspnoea [Unknown]
  - Nausea [Unknown]
  - Atrial fibrillation [Not Recovered/Not Resolved]
  - Vomiting [Unknown]
  - Dehydration [Unknown]
  - Anaemia [Unknown]
  - Atrial flutter [Not Recovered/Not Resolved]

NARRATIVE: CASE EVENT DATE: 20151214
